FAERS Safety Report 5258923-X (Version None)
Quarter: 2007Q1

REPORT INFORMATION
  Report Type: 
  Country: None (occurrence: None)
  Receive Date: 20061117
  Receipt Date: 20051222
  Transmission Date: 20070707
  Serious: Yes (Hospitalization, Disabling, Other)
  Sender: FDA-Public Use
  Company Number: US-JNJFOC-20051205491

PATIENT
  Age: 69 Year
  Sex: Female
  Weight: 31.7518 kg

DRUGS (2)
  1. LEVAQUIN [Suspect]
     Indication: PNEUMONIA
     Dates: start: 20051207, end: 20051210
  2. PREDNISONE TAB [Concomitant]

REACTIONS (1)
  - TENDON RUPTURE [None]
